FAERS Safety Report 4561151-4 (Version None)
Quarter: 2005Q1

REPORT INFORMATION
  Report Type: 
  Country: None (occurrence: None)
  Receive Date: 20050121
  Receipt Date: 20050106
  Transmission Date: 20050727
  Serious: Yes (Other)
  Sender: FDA-Public Use
  Company Number: US014536

PATIENT
  Age: 59 Year
  Sex: Male
  Weight: 99 kg

DRUGS (6)
  1. PROVIGIL [Suspect]
  2. AMARYL [Suspect]
     Indication: DIABETES MELLITUS
     Dosage: 1 MG QD ORAL
     Route: 048
     Dates: start: 20040701, end: 20040901
  3. AMARYL [Suspect]
     Indication: DIABETES MELLITUS
     Dosage: 2 MG QD ORAL
     Route: 048
     Dates: start: 20040901, end: 20041101
  4. METFORMIN HCL [Concomitant]
  5. ATACAND [Concomitant]
  6. ASPIRIN [Concomitant]

REACTIONS (5)
  - ALANINE AMINOTRANSFERASE INCREASED [None]
  - ASPARTATE AMINOTRANSFERASE INCREASED [None]
  - DRUG INTERACTION [None]
  - HEPATIC ENZYME INCREASED [None]
  - HEPATIC STEATOSIS [None]
